FAERS Safety Report 14619654 (Version 1)
Quarter: 2018Q1

REPORT INFORMATION
  Report Type: Spontaneous
  Country: DE (occurrence: DE)
  Receive Date: 20180309
  Receipt Date: 20180309
  Transmission Date: 20180509
  Serious: Yes (Hospitalization, Other)
  Sender: FDA-Public Use
  Company Number: DE-BRISTOL-MYERS SQUIBB COMPANY-BMS-2016-030392

PATIENT
  Age: 78 Year
  Sex: Male

DRUGS (6)
  1. APIXABAN [Suspect]
     Active Substance: APIXABAN
     Indication: CEREBROVASCULAR ACCIDENT PROPHYLAXIS
     Dosage: 2.5 MG, BID
     Route: 065
  2. CLOPIDOGREL BISULFATE. [Suspect]
     Active Substance: CLOPIDOGREL BISULFATE
     Indication: ATRIAL FIBRILLATION
     Dosage: 75 MG, QD
     Route: 065
  3. APIXABAN [Suspect]
     Active Substance: APIXABAN
     Indication: CORONARY ARTERIAL STENT INSERTION
     Route: 065
  4. CLOPIDOGREL BISULFATE. [Suspect]
     Active Substance: CLOPIDOGREL BISULFATE
     Indication: CORONARY ARTERIAL STENT INSERTION
     Route: 065
  5. APIXABAN [Suspect]
     Active Substance: APIXABAN
     Indication: BACK PAIN
     Route: 065
  6. CLOPIDOGREL BISULFATE. [Suspect]
     Active Substance: CLOPIDOGREL BISULFATE
     Indication: BACK PAIN
     Route: 065

REACTIONS (3)
  - Off label use [Recovered/Resolved]
  - Spinal subarachnoid haemorrhage [Recovered/Resolved]
  - Metallosis of globe [Recovered/Resolved]
